FAERS Safety Report 8325436-8 (Version None)
Quarter: 2012Q2

REPORT INFORMATION
  Report Type: 
  Country: None (occurrence: None)
  Receive Date: 20120501
  Receipt Date: 20120424
  Transmission Date: 20120825
  Serious: Yes (Hospitalization)
  Sender: FDA-Public Use
  Company Number: DE-JNJFOC-20120410617

PATIENT
  Age: 30 Year
  Sex: Female

DRUGS (6)
  1. SIMPONI [Suspect]
     Indication: PSORIATIC ARTHROPATHY
     Route: 058
     Dates: start: 20111216
  2. SIMVASTATIN [Concomitant]
     Indication: LIPIDS INCREASED
  3. METFORMIN HCL [Concomitant]
     Indication: DIABETES MELLITUS
  4. METHOTREXATE [Concomitant]
     Indication: RHEUMATOID ARTHRITIS
  5. BYETTA [Concomitant]
     Indication: DIABETES MELLITUS
  6. ARCOXIA [Concomitant]
     Indication: RHEUMATOID ARTHRITIS

REACTIONS (1)
  - HEPATIC STEATOSIS [None]
